FAERS Safety Report 17562995 (Version 1)
Quarter: 2020Q1

REPORT INFORMATION
  Report Type: Spontaneous
  Country: US (occurrence: US)
  Receive Date: 20200319
  Receipt Date: 20200319
  Transmission Date: 20200409
  Serious: Yes (Other)
  Sender: FDA-Public Use
  Company Number: US-BECTON DICKINSON-2020BDN00083

PATIENT

DRUGS (4)
  1. LIDOCAINE. [Suspect]
     Active Substance: LIDOCAINE
     Dosage: 5 ML
  2. CHLORAPREP [Suspect]
     Active Substance: CHLORHEXIDINE GLUCONATE\ISOPROPYL ALCOHOL
     Indication: INFECTION PROPHYLAXIS
     Route: 061
  3. CHLORAPREP WITH TINT [Suspect]
     Active Substance: CHLORHEXIDINE GLUCONATE\ISOPROPYL ALCOHOL
     Indication: INFECTION PROPHYLAXIS
     Route: 061
  4. POWERPICC SOLO 5 FR DL, MB WITH MI, SHERLOCK TLS STYLET [Suspect]
     Active Substance: DEVICE

REACTIONS (3)
  - Foreign body [Unknown]
  - Complication of device insertion [Unknown]
  - Device physical property issue [Unknown]
